FAERS Safety Report 10429831 (Version 1)
Quarter: 2014Q3

REPORT INFORMATION
  Report Type: Spontaneous
  Country: JP (occurrence: JP)
  Receive Date: 20140904
  Receipt Date: 20140904
  Transmission Date: 20150326
  Serious: Yes (Other)
  Sender: FDA-Public Use
  Company Number: JP-VERTEX PHARMACEUTICALS-2014-003765

PATIENT
  Age: 63 Year
  Sex: Female

DRUGS (12)
  1. TELAVIC [Suspect]
     Active Substance: TELAPREVIR
     Dosage: 1250 MG, QD
     Route: 048
     Dates: start: 20120405, end: 20120410
  2. PEGINTERFERON ALFA-2B [Suspect]
     Active Substance: PEGINTERFERON ALFA-2B
     Dosage: 0.67 ?G/KG, QW
     Route: 058
     Dates: end: 20120509
  3. TELAVIC [Suspect]
     Active Substance: TELAPREVIR
     Dosage: 750 MG, QD
     Route: 048
     Dates: start: 20120402, end: 20120404
  4. GASTER [Concomitant]
     Active Substance: FAMOTIDINE
     Dosage: 40 MG, QD
     Route: 048
     Dates: start: 20120430, end: 20120508
  5. REBETOL [Suspect]
     Active Substance: RIBAVIRIN
     Indication: CHRONIC HEPATITIS C
     Dosage: 400 MG, QD
     Route: 048
     Dates: start: 20120328, end: 20120429
  6. PEGINTERFERON ALFA-2B [Suspect]
     Active Substance: PEGINTERFERON ALFA-2B
     Indication: CHRONIC HEPATITIS C
     Dosage: 0.67 ?G/KG, QW
     Route: 058
     Dates: start: 20120328, end: 20120429
  7. PEGINTERFERON ALFA-2B [Suspect]
     Active Substance: PEGINTERFERON ALFA-2B
     Dosage: 0.67 ?G/KG, QW
     Route: 058
     Dates: start: 20120530
  8. HUMALOG N [Suspect]
     Active Substance: INSULIN LISPRO
     Indication: DIABETES MELLITUS
     Dosage: 3 ML, QD
     Route: 058
  9. HUMALOG [Suspect]
     Active Substance: INSULIN LISPRO
     Indication: DIABETES MELLITUS
     Dosage: 9 ML, QD
     Route: 058
  10. TELAVIC [Suspect]
     Active Substance: TELAPREVIR
     Indication: CHRONIC HEPATITIS C
     Dosage: 1500 MG, QD
     Route: 048
     Dates: start: 20120328, end: 20120401
  11. TELAVIC [Suspect]
     Active Substance: TELAPREVIR
     Dosage: 1500 MG, QD
     Route: 048
     Dates: start: 20120411, end: 20120429
  12. REBETOL [Suspect]
     Active Substance: RIBAVIRIN
     Dosage: 400 MG, QD
     Route: 048
     Dates: start: 20120606

REACTIONS (5)
  - Blood glucose decreased [Recovered/Resolved]
  - Urticaria [Recovering/Resolving]
  - Blister [Recovering/Resolving]
  - Erythema [Recovered/Resolved]
  - Rash [Unknown]

NARRATIVE: CASE EVENT DATE: 20120329
